FAERS Safety Report 5976809-X (Version None)
Quarter: 2008Q4

REPORT INFORMATION
  Report Type: 
  Country: None (occurrence: None)
  Receive Date: 20081125
  Receipt Date: 20081118
  Transmission Date: 20090506
  Serious: Yes (Hospitalization)
  Sender: FDA-Public Use
  Company Number: 2008SP023319

PATIENT
  Age: 54 Year
  Sex: Female

DRUGS (5)
  1. BETAMETHASONE [Suspect]
     Indication: DRUG USE FOR UNKNOWN INDICATION
     Dosage: 4 MG; QD; PO
     Route: 048
     Dates: start: 20050101
  2. BETAMETHASONE SODIUM PHOSPHATE [Suspect]
     Indication: DRUG USE FOR UNKNOWN INDICATION
     Dosage: 8 MG; ; IV
     Route: 042
     Dates: start: 20080605
  3. ACTEMRA (TOCILIZUMAB) [Suspect]
     Indication: ANKYLOSING SPONDYLITIS
     Dosage: 400 MG; ; IV
     Route: 042
     Dates: start: 20080501
  4. IMUREL [Concomitant]
  5. NEXIUM [Concomitant]

REACTIONS (2)
  - HEMIPARESIS [None]
  - HYPERTENSIVE CRISIS [None]
